FAERS Safety Report 9038720 (Version 1)
Quarter: 2013Q1

REPORT INFORMATION
  Report Type: Spontaneous
  Country: US (occurrence: None)
  Receive Date: 20130123
  Receipt Date: 20130123
  Transmission Date: 20140127
  Serious: Yes (Other)
  Sender: FDA-Public Use
  Company Number: None

PATIENT
  Age: 63 Year
  Sex: Female
  Weight: 125.5 kg

DRUGS (2)
  1. MONTELUKAST [Suspect]
     Indication: ASTHMA
     Route: 048
  2. MONTELUKAST [Suspect]
     Route: 048

REACTIONS (2)
  - Therapeutic response unexpected with drug substitution [None]
  - No therapeutic response [None]
